FAERS Safety Report 20332423 (Version 1)
Quarter: 2022Q1

REPORT INFORMATION
  Report Type: Other
  Country: NL (occurrence: NL)
  Receive Date: 20220113
  Receipt Date: 20220113
  Transmission Date: 20220423
  Serious: Yes (Death, Other)
  Sender: FDA-Public Use
  Company Number: None

PATIENT

DRUGS (10)
  1. DESLORATADINE [Suspect]
     Active Substance: DESLORATADINE
     Indication: Product used for unknown indication
     Dosage: UNK (1X PER DAG 1 STUK)
     Route: 065
     Dates: start: 20211129
  2. MICONAZOLE [Suspect]
     Active Substance: MICONAZOLE
     Indication: Product used for unknown indication
     Dosage: UNK (2X PER DAG 1 DOSIS)
     Route: 065
     Dates: start: 20211125
  3. EUTHYROX [Concomitant]
     Active Substance: LEVOTHYROXINE SODIUM
     Indication: Product used for unknown indication
     Dosage: 125 MICROGRAM
     Route: 065
  4. OMEPRAZOLE [Concomitant]
     Active Substance: OMEPRAZOLE
     Indication: Product used for unknown indication
     Dosage: 40 MILLIGRAM, CAPSULE MSR
     Route: 065
  5. ASPIRIN [Concomitant]
     Active Substance: ASPIRIN
     Indication: Product used for unknown indication
     Dosage: 80 MILLIGRAM
     Route: 065
  6. CHOLECALCIFEROL [Concomitant]
     Active Substance: CHOLECALCIFEROL
     Indication: Product used for unknown indication
     Dosage: UNK
     Route: 065
  7. POLYETHYLENE GLYCOLS [Concomitant]
     Active Substance: POLYETHYLENE GLYCOLS
     Indication: Product used for unknown indication
     Dosage: POEDER VOOR DRANK, 1 GRAM PER GRAM
     Route: 065
  8. METFORMIN HYDROCHLORIDE [Concomitant]
     Active Substance: METFORMIN HYDROCHLORIDE
     Indication: Product used for unknown indication
     Dosage: 500 MILLIGRAM
     Route: 065
  9. SOLIFENACIN [Concomitant]
     Active Substance: SOLIFENACIN
     Indication: Product used for unknown indication
     Dosage: 5 MILLIGRAM
     Route: 065
  10. HUMALOG [Concomitant]
     Active Substance: INSULIN LISPRO
     Indication: Product used for unknown indication
     Dosage: UNK, 100 E/ML
     Route: 065

REACTIONS (9)
  - Hypophagia [Fatal]
  - Oxygen saturation decreased [Fatal]
  - Depressed level of consciousness [Fatal]
  - Dementia [Fatal]
  - Balance disorder [Not Recovered/Not Resolved]
  - Pyrexia [Recovering/Resolving]
  - Malaise [Recovering/Resolving]
  - Fatigue [Not Recovered/Not Resolved]
  - Somnolence [Not Recovered/Not Resolved]

NARRATIVE: CASE EVENT DATE: 20211130
